FAERS Safety Report 9046627 (Version 2)
Quarter: 2013Q1

REPORT INFORMATION
  Report Type: Spontaneous
  Country: US (occurrence: US)
  Receive Date: 20130204
  Receipt Date: 20130315
  Transmission Date: 20140127
  Serious: Yes (Hospitalization)
  Sender: FDA-Public Use
  Company Number: US-BIOGENIDEC-2013BI008984

PATIENT
  Age: 60 None
  Sex: Female

DRUGS (2)
  1. AVONEX [Suspect]
     Indication: MULTIPLE SCLEROSIS
     Route: 030
     Dates: start: 20050802
  2. HEPARIN [Concomitant]

REACTIONS (3)
  - Coeliac disease [Not Recovered/Not Resolved]
  - Poor venous access [Not Recovered/Not Resolved]
  - Memory impairment [Not Recovered/Not Resolved]
